FAERS Safety Report 8739830 (Version 2)
Quarter: 2012Q4

REPORT INFORMATION
  Report Type: 
  Country: FI (occurrence: FI)
  Receive Date: 20120823
  Receipt Date: 20121002
  Transmission Date: 20130627
  Serious: Yes (Hospitalization)
  Sender: FDA-Public Use
  Company Number: FI-ROCHE-1102581

PATIENT
  Age: 47 Year
  Sex: Female

DRUGS (3)
  1. ZELBORAF [Suspect]
     Indication: METASTATIC MALIGNANT MELANOMA
     Route: 065
     Dates: start: 20120516
  2. ZELBORAF [Suspect]
     Dosage: Drug restart
     Route: 065
  3. DEXAMETHASONE [Concomitant]
     Indication: IMMUNOSUPPRESSANT DRUG THERAPY
     Route: 065
     Dates: start: 20120511, end: 20120618

REACTIONS (1)
  - Pneumocystis jiroveci pneumonia [Recovered/Resolved]
